FAERS Safety Report 17258766 (Version 1)
Quarter: 2020Q1

REPORT INFORMATION
  Report Type: Spontaneous
  Country: KR (occurrence: KR)
  Receive Date: 20200110
  Receipt Date: 20200110
  Transmission Date: 20200409
  Serious: Yes (Disabling, Other)
  Sender: FDA-Public Use
  Company Number: KR-FRESENIUS KABI-FK202000268

PATIENT
  Age: 50 Year
  Sex: Female
  Weight: 62.1 kg

DRUGS (3)
  1. DEXAMETHASONE INJECTION (MANUFACTURER UNKNOWN) [Suspect]
     Active Substance: DEXAMETHASONE
     Indication: CERVICAL RADICULOPATHY
     Dosage: 5MG; PART OF A 4ML MIXTURE WITH MEPIVACAINE AND HYALURONIDASE
     Route: 008
  2. MEPIVACAINE INJECTION (MANUFACTURER UNKNOWN) [Suspect]
     Active Substance: MEPIVACAINE HYDROCHLORIDE
     Indication: CERVICAL RADICULOPATHY
     Dosage: PART OF A 4ML MIXTURE WITH DEXAMETHASONE AND HYALURONIDASE
     Route: 008
  3. HYALURONIDASE [Suspect]
     Active Substance: HYALURONIDASE
     Indication: CERVICAL RADICULOPATHY
     Dosage: 1500 IU; PART OF A 4ML MIXTURE WITH DEXAMETHASONE AND MEPIVACAINE
     Route: 008

REACTIONS (3)
  - Myelopathy [Recovered/Resolved with Sequelae]
  - Incorrect route of product administration [Recovered/Resolved with Sequelae]
  - Quadriparesis [Recovered/Resolved with Sequelae]
